FAERS Safety Report 5119019-0 (Version None)
Quarter: 2006Q3

REPORT INFORMATION
  Report Type: 
  Country: None (occurrence: None)
  Receive Date: 20060927
  Receipt Date: 20060922
  Transmission Date: 20061208
  Serious: Yes (Hospitalization)
  Sender: FDA-Public Use
  Company Number: 215660

PATIENT
  Age: 59 Year
  Sex: Male
  Weight: 116 kg

DRUGS (9)
  1. AVASTIN [Suspect]
     Indication: COLORECTAL CANCER METASTATIC
     Dosage: 580 MG, SINGLE, INTRAVENOUS
     Route: 042
     Dates: start: 20050624, end: 20050624
  2. HYDROCODONE (HYDROCODONE BITARTRATE) [Concomitant]
  3. ARANESP [Concomitant]
  4. NEXIUM [Concomitant]
  5. MULTIVITAMIN (MULTIVITAMINS NOS) [Concomitant]
  6. WARFARIN SODIUM [Concomitant]
  7. IRINOTECAN HCL [Concomitant]
  8. LEUCOVORIN (LEUCOVORIN CALCIUM) [Concomitant]
  9. FLUOROURACIL [Concomitant]

REACTIONS (3)
  - INTESTINAL PERFORATION [None]
  - PERITONITIS [None]
  - SMALL INTESTINAL OBSTRUCTION [None]
